FAERS Safety Report 16772579 (Version 1)
Quarter: 2019Q3

REPORT INFORMATION
  Report Type: Spontaneous
  Country: JP (occurrence: JP)
  Receive Date: 20190904
  Receipt Date: 20190904
  Transmission Date: 20191005
  Serious: Yes (Other)
  Sender: FDA-Public Use
  Company Number: JP-AMERICAN REGENT INC-2019001913

PATIENT
  Age: 47 Year
  Sex: Female

DRUGS (4)
  1. ANAGRELIDE HYDROCHLORIDE. [Suspect]
     Active Substance: ANAGRELIDE HYDROCHLORIDE
     Indication: ESSENTIAL THROMBOCYTHAEMIA
     Dosage: 0.5 MILLIGRAM, QD
     Route: 065
  2. ANAGRELIDE HYDROCHLORIDE. [Suspect]
     Active Substance: ANAGRELIDE HYDROCHLORIDE
     Dosage: 1.5 MILLIGRAM, QD
     Route: 065
  3. NIFEDIPINE. [Concomitant]
     Active Substance: NIFEDIPINE
     Indication: SUBARACHNOID HAEMORRHAGE
     Dosage: UNK
     Route: 065
  4. TRANSAMIN [Suspect]
     Active Substance: TRANEXAMIC ACID
     Indication: SUBARACHNOID HAEMORRHAGE
     Dosage: UNK
     Route: 065

REACTIONS (2)
  - Cerebellar infarction [Unknown]
  - Vertebral artery dissection [Unknown]
